APPROVED DRUG PRODUCT: TRIHEXYPHENIDYL HYDROCHLORIDE
Active Ingredient: TRIHEXYPHENIDYL HYDROCHLORIDE
Strength: 2MG/5ML
Dosage Form/Route: ELIXIR;ORAL
Application: A040251 | Product #001 | TE Code: AA
Applicant: CHARTWELL RX SCIENCES LLC
Approved: Sep 27, 1999 | RLD: No | RS: No | Type: RX